FAERS Safety Report 20044701 (Version 1)
Quarter: 2021Q4

REPORT INFORMATION
  Report Type: Spontaneous
  Country: SE (occurrence: None)
  Receive Date: 20211108
  Receipt Date: 20211108
  Transmission Date: 20220303
  Serious: Yes (Hospitalization, Disabling)
  Sender: FDA-Public Use
  Company Number: 2021A785463

PATIENT
  Age: 53 Year
  Sex: Female

DRUGS (7)
  1. FASENRA [Suspect]
     Active Substance: BENRALIZUMAB
     Indication: Eosinophilic pneumonia
     Route: 058
     Dates: start: 20200303, end: 20200430
  2. FASENRA [Suspect]
     Active Substance: BENRALIZUMAB
     Indication: Eosinophilic pneumonia
     Route: 058
     Dates: start: 20200501, end: 20210903
  3. NUCALA [Suspect]
     Active Substance: MEPOLIZUMAB
     Indication: Eosinophilic pneumonia
     Route: 058
     Dates: start: 20190108, end: 202001
  4. NUCALA [Suspect]
     Active Substance: MEPOLIZUMAB
     Indication: Eosinophilic pneumonia
     Route: 058
     Dates: start: 202001, end: 20200302
  5. ALBUTEROL SULFATE [Concomitant]
     Active Substance: ALBUTEROL SULFATE
     Route: 065
  6. AZELASTINE HYDROCHLORIDE/FLUTICASONE PROPIONATE [Concomitant]
     Route: 065
  7. ALVESCO 160 MIKROGRAM/DOS INHALATIONSSPRAY, LOSNING [Concomitant]
     Dosage: 4.0DF UNKNOWN
     Route: 065

REACTIONS (1)
  - Multiple sclerosis [Not Recovered/Not Resolved]

NARRATIVE: CASE EVENT DATE: 20210824
